FAERS Safety Report 9585972 (Version 1)
Quarter: 2013Q4

REPORT INFORMATION
  Report Type: Spontaneous
  Country: US (occurrence: None)
  Receive Date: 20131002
  Receipt Date: 20131002
  Transmission Date: 20140711
  Serious: No
  Sender: FDA-Public Use
  Company Number: None

PATIENT
  Age: 26 Year
  Sex: Female

DRUGS (12)
  1. RITUXAN [Suspect]
  2. ONDANSERTRON HYDROCHLORIDE [Concomitant]
  3. ZOFRAN [Concomitant]
  4. ALBUTEROL [Concomitant]
  5. BUDESONIDE [Concomitant]
  6. ETHAMBUTOL [Concomitant]
  7. ISONIAZID [Concomitant]
  8. LORATADINE [Concomitant]
  9. OXYCODONE/ACETAMINOPHEN [Concomitant]
  10. PROTONIX [Concomitant]
  11. PYRIDOXINE [Concomitant]
  12. RIFAMPIN [Concomitant]

REACTIONS (3)
  - Chills [None]
  - Hyperhidrosis [None]
  - Blood pressure fluctuation [None]
